FAERS Safety Report 18596057 (Version 1)
Quarter: 2020Q4

REPORT INFORMATION
  Report Type: Spontaneous
  Country: GB (occurrence: GB)
  Receive Date: 20201209
  Receipt Date: 20201209
  Transmission Date: 20210114
  Serious: Yes (Other)
  Sender: FDA-Public Use
  Company Number: GB-TEVA-2020-GB-1855796

PATIENT
  Age: 96 Year
  Sex: Female
  Weight: 49 kg

DRUGS (16)
  1. PARACETAMOL [Concomitant]
     Active Substance: ACETAMINOPHEN
     Dosage: 20  ML
     Dates: start: 20190114
  2. ADCAL [Concomitant]
     Dosage: 1 DF
     Dates: start: 20190114
  3. NIZATIDINE. [Concomitant]
     Active Substance: NIZATIDINE
     Dosage: 1 DOSAGE FORMS DAILY; AT NIGHT
     Dates: start: 20201019
  4. LAXIDO [Concomitant]
     Active Substance: POLYETHYLENE GLYCOL 3350\POTASSIUM CHLORIDE\SODIUM BICARBONATE\SODIUM CHLORIDE
     Dosage: 2 DF
     Dates: start: 20200918
  5. CASSIA [Concomitant]
     Dosage: TAKE 1 OR 2 AT NIGHT WHEN REQUIRED
     Dates: start: 20190828
  6. AMLODIPINE [Concomitant]
     Active Substance: AMLODIPINE BESYLATE
     Dosage: 1 DF
     Dates: start: 20200918
  7. TRIMETHOPRIM. [Concomitant]
     Active Substance: TRIMETHOPRIM
     Dosage: 2 DF
     Dates: start: 20200924, end: 20200927
  8. EPADERM [Concomitant]
     Active Substance: MINERAL OIL\PETROLATUM\WAX, EMULSIFYING
     Indication: DRY SKIN
     Dosage: UP TO 3 TIMES DAILY, TO AREAS OF DRY SKIN, 1 DF
     Dates: start: 20190905
  9. FOSTAIR [Concomitant]
     Active Substance: BECLOMETHASONE\FORMOTEROL
     Dosage: PUFFS, 4 DF
     Dates: start: 20190114
  10. CLOPIDOGREL [Concomitant]
     Active Substance: CLOPIDOGREL BISULFATE
     Dosage: 1 DF
     Dates: start: 20190114
  11. FAMOTIDINE. [Concomitant]
     Active Substance: FAMOTIDINE
     Dosage: 1 DOSAGE FORMS DAILY; AT NIGHT
     Dates: start: 20200918, end: 20201019
  12. LANSOPRAZOLE. [Suspect]
     Active Substance: LANSOPRAZOLE
     Dosage: 15 MG
     Dates: start: 20200513
  13. NITROFURANTOIN. [Concomitant]
     Active Substance: NITROFURANTOIN
     Dosage: 2 DF
     Dates: start: 20201020, end: 20201023
  14. DOCUSATE SODIUM. [Concomitant]
     Active Substance: DOCUSATE SODIUM
     Dosage: 4 DF
     Dates: start: 20190114
  15. RANITIDINE. [Concomitant]
     Active Substance: RANITIDINE
     Dosage: 2 DF
     Dates: start: 20190114, end: 20200821
  16. SALBUTAMOL [Concomitant]
     Active Substance: ALBUTEROL
     Dosage: 2 DF
     Route: 055
     Dates: start: 20201029

REACTIONS (1)
  - Hyponatraemia [Recovering/Resolving]

NARRATIVE: CASE EVENT DATE: 20201111
